FAERS Safety Report 23280691 (Version 1)
Quarter: 2023Q4

REPORT INFORMATION
  Report Type: Report from Study
  Country: CA (occurrence: CA)
  Receive Date: 20231211
  Receipt Date: 20231211
  Transmission Date: 20240110
  Serious: Yes (Other)
  Sender: FDA-Public Use
  Company Number: CA-ABBVIE-5525436

PATIENT
  Sex: Female

DRUGS (1)
  1. HUMIRA [Suspect]
     Active Substance: ADALIMUMAB
     Indication: Crohn^s disease
     Route: 058
     Dates: start: 20201222

REACTIONS (6)
  - Frequent bowel movements [Unknown]
  - Proctalgia [Unknown]
  - Mucous stools [Unknown]
  - Oral pain [Unknown]
  - Arthralgia [Unknown]
  - Gastrointestinal wall thickening [Unknown]
